FAERS Safety Report 4556478-6 (Version None)
Quarter: 2005Q1

REPORT INFORMATION
  Report Type: 
  Country: None (occurrence: None)
  Receive Date: 20050114
  Receipt Date: 20050103
  Transmission Date: 20050727
  Serious: Yes (Hospitalization)
  Sender: FDA-Public Use
  Company Number: 2004UW18449

PATIENT
  Age: 70 Year
  Sex: Female

DRUGS (11)
  1. CRESTOR [Suspect]
     Indication: HYPERLIPIDAEMIA
     Dosage: 20 MG QD PO
     Route: 048
     Dates: start: 20040609
  2. TYLENOL [Concomitant]
  3. PREVACID [Concomitant]
  4. METFORMIN HCL [Concomitant]
  5. LISINOPRIL [Concomitant]
  6. WARFARIN SODIUM [Concomitant]
  7. METOPROLOL [Concomitant]
  8. GLYBURIDE [Concomitant]
  9. DARVOCET-N 100 [Concomitant]
  10. HYDROCHLOROTHIAZIDE [Concomitant]
  11. ENALAPRIL MALEATE [Concomitant]

REACTIONS (15)
  - ATRIAL FIBRILLATION [None]
  - BLOOD PRESSURE SYSTOLIC DECREASED [None]
  - DECREASED APPETITE [None]
  - DIABETES MELLITUS INADEQUATE CONTROL [None]
  - DIZZINESS [None]
  - EATING DISORDER [None]
  - HEPATIC STEATOSIS [None]
  - HEPATITIS [None]
  - HYPOTENSION [None]
  - HYPOVOLAEMIA [None]
  - QRS AXIS ABNORMAL [None]
  - RENAL FAILURE [None]
  - RHABDOMYOLYSIS [None]
  - SYNCOPE [None]
  - SYNCOPE VASOVAGAL [None]
